FAERS Safety Report 10564682 (Version 3)
Quarter: 2016Q1

REPORT INFORMATION
  Report Type: Spontaneous
  Country: GB (occurrence: GB)
  Receive Date: 20141104
  Receipt Date: 20160330
  Transmission Date: 20160525
  Serious: Yes (Disabling, Other)
  Sender: FDA-Public Use
  Company Number: GB-ASTRAZENECA-2014SE83356

PATIENT
  Age: 34 Year
  Sex: Male
  Weight: 120 kg

DRUGS (7)
  1. OMEPRAZOL [Suspect]
     Active Substance: OMEPRAZOLE
     Indication: HIATUS HERNIA
     Route: 048
     Dates: start: 20140204, end: 201403
  2. SERTRALINE [Concomitant]
     Active Substance: SERTRALINE HYDROCHLORIDE
  3. OMEPRAZOL [Suspect]
     Active Substance: OMEPRAZOLE
     Indication: GASTROOESOPHAGEAL REFLUX DISEASE
     Route: 048
     Dates: start: 201401
  4. OMEPRAZOL [Suspect]
     Active Substance: OMEPRAZOLE
     Indication: GASTROOESOPHAGEAL REFLUX DISEASE
     Route: 048
     Dates: start: 20140204, end: 201403
  5. OMEPRAZOL [Suspect]
     Active Substance: OMEPRAZOLE
     Indication: HIATUS HERNIA
     Route: 048
     Dates: start: 20140915, end: 20141018
  6. OMEPRAZOL [Suspect]
     Active Substance: OMEPRAZOLE
     Indication: HIATUS HERNIA
     Route: 048
     Dates: start: 201401
  7. OMEPRAZOL [Suspect]
     Active Substance: OMEPRAZOLE
     Indication: GASTROOESOPHAGEAL REFLUX DISEASE
     Route: 048
     Dates: start: 20140915, end: 20141018

REACTIONS (12)
  - Sleep disorder [Not Recovered/Not Resolved]
  - Oropharyngeal pain [Not Recovered/Not Resolved]
  - Myalgia [Not Recovered/Not Resolved]
  - Muscle twitching [Recovering/Resolving]
  - Insomnia [Not Recovered/Not Resolved]
  - Confusional state [Not Recovered/Not Resolved]
  - Arthralgia [Not Recovered/Not Resolved]
  - Feeling abnormal [Recovering/Resolving]
  - Flatulence [Not Recovered/Not Resolved]
  - Joint crepitation [Not Recovered/Not Resolved]
  - Fatigue [Recovering/Resolving]
  - Dizziness [Not Recovered/Not Resolved]

NARRATIVE: CASE EVENT DATE: 20140927
